FAERS Safety Report 16935927 (Version 1)
Quarter: 2019Q4

REPORT INFORMATION
  Report Type: Spontaneous
  Country: US (occurrence: US)
  Receive Date: 20191018
  Receipt Date: 20191018
  Transmission Date: 20200122
  Serious: Yes (Hospitalization, Other)
  Sender: FDA-Public Use
  Company Number: US-PFIZER INC-2019441832

PATIENT
  Age: 25 Year
  Sex: Female
  Weight: 54.43 kg

DRUGS (2)
  1. ZYVOX [Suspect]
     Active Substance: LINEZOLID
     Indication: BACTERAEMIA
     Dosage: 600 MG, 2X/DAY (DISPENSE 56 TABLET)
     Route: 048
  2. ZYVOX [Suspect]
     Active Substance: LINEZOLID
     Indication: ENDOCARDITIS

REACTIONS (8)
  - Wound infection staphylococcal [Not Recovered/Not Resolved]
  - Renal impairment [Unknown]
  - Pulmonary function test decreased [Unknown]
  - Staphylococcal bacteraemia [Not Recovered/Not Resolved]
  - Movement disorder [Not Recovered/Not Resolved]
  - Dyspnoea [Not Recovered/Not Resolved]
  - Condition aggravated [Not Recovered/Not Resolved]
  - Swelling [Not Recovered/Not Resolved]
